FAERS Safety Report 13226526 (Version 1)
Quarter: 2017Q1

REPORT INFORMATION
  Report Type: Spontaneous
  Country: US (occurrence: US)
  Receive Date: 20170213
  Receipt Date: 20170213
  Transmission Date: 20170428
  Serious: No
  Sender: FDA-Public Use
  Company Number: None

PATIENT

DRUGS (1)
  1. AMLODIPINE BESYLATE AND ATORVASTATIN CALCIUM [Suspect]
     Active Substance: AMLODIPINE BESYLATE\ATORVASTATIN CALCIUM

REACTIONS (6)
  - Heart rate increased [None]
  - Chest discomfort [None]
  - Blood pressure increased [None]
  - Drug dispensing error [None]
  - Headache [None]
  - Wrong drug administered [None]

NARRATIVE: CASE EVENT DATE: 2016
